FAERS Safety Report 7067433-9 (Version None)
Quarter: 2010Q4

REPORT INFORMATION
  Report Type: 
  Country: None (occurrence: None)
  Receive Date: 20101022
  Receipt Date: 20101022
  Transmission Date: 20110411
  Serious: No
  Sender: FDA-Public Use
  Company Number: None

PATIENT
  Age: 53 Year
  Sex: Female
  Weight: 68.4932 kg

DRUGS (1)
  1. LEVAQUIN [Suspect]

REACTIONS (11)
  - DRUG EFFECT DECREASED [None]
  - DYSSTASIA [None]
  - GAIT DISTURBANCE [None]
  - HYPOAESTHESIA [None]
  - IMPAIRED DRIVING ABILITY [None]
  - IMPAIRED WORK ABILITY [None]
  - INFLAMMATION [None]
  - MUSCULOSKELETAL PAIN [None]
  - SLEEP DISORDER [None]
  - SWELLING [None]
  - TENDONITIS [None]
